FAERS Safety Report 10257874 (Version 1)
Quarter: 2014Q2

REPORT INFORMATION
  Report Type: Spontaneous
  Country: SI (occurrence: None)
  Receive Date: 20140620
  Receipt Date: 20140620
  Transmission Date: 20141212
  Serious: Yes (Other)
  Sender: FDA-Public Use
  Company Number: FK201402373

PATIENT
  Age: 8 Week
  Sex: Female

DRUGS (1)
  1. MAGNESIUM SULFATE [Suspect]
     Indication: HYPOMAGNESAEMIA
     Dosage: 15MMOL OVER 3 HOURS
     Route: 042

REACTIONS (8)
  - Accidental overdose [None]
  - Apnoea [None]
  - Bradycardia [None]
  - Device pacing issue [None]
  - Body temperature increased [None]
  - Respiratory rate increased [None]
  - Heart rate increased [None]
  - Toxicity to various agents [None]
